FAERS Safety Report 20336001 (Version 1)
Quarter: 2022Q1

REPORT INFORMATION
  Report Type: Spontaneous
  Country: US (occurrence: None)
  Receive Date: 20220114
  Receipt Date: 20220114
  Transmission Date: 20220423
  Serious: Yes (Other)
  Sender: FDA-Public Use
  Company Number: 2022A012885

PATIENT
  Sex: Female

DRUGS (1)
  1. SYMBICORT [Suspect]
     Active Substance: BUDESONIDE\FORMOTEROL FUMARATE DIHYDRATE
     Indication: Asthma
     Dosage: 200; AS REQUIRED.
     Route: 055

REACTIONS (8)
  - Overdose [Unknown]
  - Blindness transient [Unknown]
  - COVID-19 [Unknown]
  - Visual impairment [Unknown]
  - Visual field defect [Unknown]
  - Vision blurred [Unknown]
  - Panic reaction [Unknown]
  - Product use issue [Unknown]
